FAERS Safety Report 25784828 (Version 1)
Quarter: 2025Q3

REPORT INFORMATION
  Report Type: Spontaneous
  Country: EU (occurrence: EU)
  Receive Date: 20250910
  Receipt Date: 20250910
  Transmission Date: 20251020
  Serious: Yes (Other)
  Sender: CELLTRION
  Company Number: EU-ABBVIE-6409099

PATIENT

DRUGS (5)
  1. ADALIMUMAB [Suspect]
     Active Substance: ADALIMUMAB
     Indication: Acute macular neuroretinopathy
     Route: 058
  2. ADALIMUMAB [Suspect]
     Active Substance: ADALIMUMAB
     Route: 065
  3. METHOTREXATE [Suspect]
     Active Substance: METHOTREXATE
     Indication: Acute macular neuroretinopathy
  4. METHOTREXATE [Suspect]
     Active Substance: METHOTREXATE
     Route: 065
  5. PREDNISOLONE [Concomitant]
     Active Substance: PREDNISOLONE
     Indication: Acute macular neuroretinopathy

REACTIONS (11)
  - Acute macular neuroretinopathy [Unknown]
  - Abdominal discomfort [Unknown]
  - Malaise [Unknown]
  - Social avoidant behaviour [Unknown]
  - Influenza like illness [Unknown]
  - Fatigue [Unknown]
  - Depressive symptom [Unknown]
  - Alopecia [Unknown]
  - Headache [Unknown]
  - Myalgia [Unknown]
  - Off label use [Unknown]
